FAERS Safety Report 5944554-2 (Version None)
Quarter: 2008Q4

REPORT INFORMATION
  Report Type: 
  Country: None (occurrence: None)
  Receive Date: 20081105
  Receipt Date: 20081024
  Transmission Date: 20090506
  Serious: Yes (Other)
  Sender: FDA-Public Use
  Company Number: PAR_02400_2008

PATIENT
  Sex: Female

DRUGS (1)
  1. MEGACE ES [Suspect]
     Indication: WEIGHT DECREASED
     Dosage: 1 TEASPOON DAILY

REACTIONS (3)
  - CONFUSIONAL STATE [None]
  - FALL [None]
  - MOBILITY DECREASED [None]
